FAERS Safety Report 25664050 (Version 1)
Quarter: 2025Q3

REPORT INFORMATION
  Report Type: Spontaneous
  Country: EU (occurrence: EU)
  Receive Date: 20250811
  Receipt Date: 20250811
  Transmission Date: 20251020
  Serious: Yes (Other)
  Sender: REGENERON
  Company Number: None

PATIENT
  Age: 83 Year
  Sex: Male

DRUGS (4)
  1. EYLEA [Suspect]
     Active Substance: AFLIBERCEPT
     Indication: Age-related macular degeneration
     Dates: start: 20240618
  2. EYLEA [Suspect]
     Active Substance: AFLIBERCEPT
     Dates: start: 20240903
  3. EYLEA [Suspect]
     Active Substance: AFLIBERCEPT
     Dates: start: 20241112
  4. EYLEA [Suspect]
     Active Substance: AFLIBERCEPT
     Dates: start: 20250610

REACTIONS (3)
  - Retinal oedema [Not Recovered/Not Resolved]
  - Visual acuity reduced [Not Recovered/Not Resolved]
  - Therapeutic product effect decreased [Not Recovered/Not Resolved]

NARRATIVE: CASE EVENT DATE: 20250701
